FAERS Safety Report 9188052 (Version 2)
Quarter: 2014Q2

REPORT INFORMATION
  Report Type: Spontaneous
  Country: US (occurrence: US)
  Receive Date: 20130325
  Receipt Date: 20140408
  Transmission Date: 20141212
  Serious: Yes (Hospitalization)
  Sender: FDA-Public Use
  Company Number: US-B.I. PHARMACEUTICALS,INC./RIDGEFIELD-2013-BI-07183BP

PATIENT
  Age: 68 Year
  Sex: Female
  Weight: 117.93 kg

DRUGS (15)
  1. PRADAXA [Suspect]
     Indication: ATRIAL FIBRILLATION
     Dosage: 300 MG
     Route: 065
     Dates: start: 20101228, end: 20110305
  2. LISINOPRIL [Concomitant]
     Dosage: 10 MG
     Route: 065
  3. TOPROL XL [Concomitant]
     Dosage: 100 MG
     Route: 065
  4. ZOCOR [Concomitant]
     Dosage: 20 MG
     Route: 065
  5. SYNTHROID [Concomitant]
     Dosage: 125 MCG
     Route: 065
  6. ZYLOPRIM [Concomitant]
     Dosage: 300 MG
     Route: 065
  7. LORAZEPAM [Concomitant]
     Dosage: 2 MG
     Route: 065
  8. PEPCID [Concomitant]
     Dosage: 40 MG
     Route: 065
  9. BENADRYL [Concomitant]
     Dosage: 50 MG
     Route: 065
  10. SYMBICORT [Concomitant]
     Route: 065
  11. LASIX [Concomitant]
     Dosage: 160 MG
     Route: 065
  12. GABAPENTIN [Concomitant]
     Dosage: 300 MG
     Route: 065
  13. INSULIN 70/30 [Concomitant]
     Dosage: 170 U
     Route: 065
  14. VICODIN [Concomitant]
     Route: 065
  15. TRAMADOL [Concomitant]
     Route: 065

REACTIONS (3)
  - Lower gastrointestinal haemorrhage [Recovered/Resolved]
  - Anaemia [Unknown]
  - Renal failure acute [Unknown]
